FAERS Safety Report 14283340 (Version 5)
Quarter: 2018Q1

REPORT INFORMATION
  Report Type: Spontaneous
  Country: US (occurrence: US)
  Receive Date: 20171213
  Receipt Date: 20180209
  Transmission Date: 20180508
  Serious: Yes (Other)
  Sender: FDA-Public Use
  Company Number: US-BAUSCH-BL-2017-030553

PATIENT
  Sex: Female
  Weight: 58.57 kg

DRUGS (6)
  1. DILTIAZEM. [Suspect]
     Active Substance: DILTIAZEM
     Indication: ATRIAL FIBRILLATION
     Dosage: ONE IN MORNING AND ONE IN NIGHT.?REASON: SHE WAS NOT ABLE TO TOLERATE IT
     Route: 048
     Dates: start: 2017, end: 201708
  2. CARDIZEM CD [Suspect]
     Active Substance: DILTIAZEM HYDROCHLORIDE
     Indication: PRODUCT USED FOR UNKNOWN INDICATION
     Dosage: 240 MG IN THE MORNING AND 120 MG IN THE NIGHT.
     Route: 065
     Dates: start: 201708
  3. DILTIAZEM. [Suspect]
     Active Substance: DILTIAZEM
     Indication: HYPERTENSION
     Dosage: TWO IN MORNING AND ONE IN NIGHT.
     Route: 048
     Dates: start: 20170117, end: 2017
  4. JANTOVEN [Concomitant]
     Active Substance: WARFARIN SODIUM
     Indication: ANTICOAGULANT THERAPY
     Dosage: 3 MG FOR 6 DAYS
     Route: 048
     Dates: start: 200912
  5. XANAX [Concomitant]
     Active Substance: ALPRAZOLAM
     Indication: ANXIETY
     Route: 048
  6. JANTOVEN [Concomitant]
     Active Substance: WARFARIN SODIUM
     Dosage: FOR ONE DAY IN A WEEK
     Dates: start: 200912

REACTIONS (3)
  - Vision blurred [Recovered/Resolved]
  - Atrial fibrillation [Not Recovered/Not Resolved]
  - Abdominal pain upper [Recovered/Resolved]

NARRATIVE: CASE EVENT DATE: 2017
